FAERS Safety Report 9602862 (Version 1)
Quarter: 2013Q4

REPORT INFORMATION
  Report Type: Spontaneous
  Country: US (occurrence: US)
  Receive Date: 20131007
  Receipt Date: 20131007
  Transmission Date: 20140711
  Serious: Yes (Other)
  Sender: FDA-Public Use
  Company Number: US-PFIZER INC-2013282197

PATIENT
  Sex: 0

DRUGS (1)
  1. FLAGYL [Suspect]
     Indication: CLOSTRIDIUM DIFFICILE INFECTION
     Dosage: UNK

REACTIONS (5)
  - Paralysis [Unknown]
  - Arthralgia [Unknown]
  - Local swelling [Unknown]
  - Myalgia [Unknown]
  - Serum sickness [Unknown]
